FAERS Safety Report 10037633 (Version 1)
Quarter: 2014Q1

REPORT INFORMATION
  Report Type: Spontaneous
  Country: US (occurrence: US)
  Receive Date: 20140326
  Receipt Date: 20140326
  Transmission Date: 20141002
  Serious: Yes (Other)
  Sender: FDA-Public Use
  Company Number: US-PFIZER INC-2014083064

PATIENT
  Age: 66 Year
  Sex: Female
  Weight: 90.25 kg

DRUGS (2)
  1. LYRICA [Suspect]
     Indication: FIBROMYALGIA
     Dosage: 50 MG, 2X/DAY
     Dates: start: 2013
  2. KLONOPIN [Concomitant]
     Indication: INSOMNIA
     Dosage: UNK

REACTIONS (1)
  - Weight increased [Unknown]
